FAERS Safety Report 16845553 (Version 1)
Quarter: 2019Q3

REPORT INFORMATION
  Report Type: Spontaneous
  Country: SE (occurrence: SE)
  Receive Date: 20190924
  Receipt Date: 20190924
  Transmission Date: 20191005
  Serious: Yes (Hospitalization)
  Sender: FDA-Public Use
  Company Number: SE-009507513-1909SWE005725

PATIENT
  Age: 47 Year
  Sex: Male

DRUGS (4)
  1. LERGIGAN (PROMETHAZINE HYDROCHLORIDE) [Suspect]
     Active Substance: PROMETHAZINE HYDROCHLORIDE
     Dosage: 50 PIECES OF 50 MG
     Route: 048
     Dates: start: 20190114, end: 20190114
  2. TRANON [Suspect]
     Active Substance: TRANEXAMIC ACID
     Dosage: 50 PIECES OF 5 MG
     Dates: start: 20190114, end: 20190114
  3. MIRTAZAPINE. [Suspect]
     Active Substance: MIRTAZAPINE
     Dosage: 12 TO 14 PIECES OF 15 MG
     Route: 048
     Dates: start: 20190114, end: 20190114
  4. METOPROLOL. [Suspect]
     Active Substance: METOPROLOL
     Dosage: 1250 MILLIGRAM (25 PIECES OF 50 MG)
     Route: 048
     Dates: start: 20190114, end: 20190114

REACTIONS (4)
  - Intentional self-injury [Unknown]
  - Intentional overdose [Unknown]
  - Hallucination [Unknown]
  - Vomiting [Unknown]

NARRATIVE: CASE EVENT DATE: 20190114
